FAERS Safety Report 24176348 (Version 1)
Quarter: 2024Q3

REPORT INFORMATION
  Report Type: Spontaneous
  Country: EG (occurrence: EG)
  Receive Date: 20240806
  Receipt Date: 20240806
  Transmission Date: 20241017
  Serious: Yes (Other)
  Sender: NOVO NORDISK
  Company Number: EG-NOVOPROD-1261739

PATIENT
  Age: 3 Year
  Sex: Female

DRUGS (1)
  1. NOVOSEVEN RT [Suspect]
     Active Substance: COAGULATION FACTOR VIIA RECOMBINANT HUMAN
     Indication: Product used for unknown indication
     Dosage: 15-30 MCG/KG EVERY 4-6 HOURS

REACTIONS (3)
  - Haemorrhage [Unknown]
  - Anti factor VII antibody positive [Unknown]
  - Drug ineffective [Unknown]
